FAERS Safety Report 10092042 (Version 3)
Quarter: 2015Q3

REPORT INFORMATION
  Report Type: Spontaneous
  Country: US (occurrence: US)
  Receive Date: 20140421
  Receipt Date: 20150814
  Transmission Date: 20151125
  Serious: No
  Sender: FDA-Public Use
  Company Number: US-GILEAD-2013-0070948

PATIENT
  Age: 71 Year
  Sex: Female

DRUGS (8)
  1. LETAIRIS [Suspect]
     Active Substance: AMBRISENTAN
     Indication: PULMONARY HYPERTENSION
     Dosage: 5 MG, QD
     Route: 048
     Dates: start: 20120629, end: 20130128
  2. WARFARIN [Concomitant]
     Active Substance: WARFARIN
  3. METOPROLOL [Concomitant]
     Active Substance: METOPROLOL
  4. EDARBYCLOR [Concomitant]
     Active Substance: AZILSARTAN KAMEDOXOMIL\CHLORTHALIDONE
  5. SIMVASTATIN. [Concomitant]
     Active Substance: SIMVASTATIN
  6. DIGOXIN. [Concomitant]
     Active Substance: DIGOXIN
  7. DIPHENOXYLATE/ATROPINE [Concomitant]
     Active Substance: ATROPINE\DIPHENOXYLATE
  8. AMLODIPINE [Concomitant]
     Active Substance: AMLODIPINE BESYLATE

REACTIONS (1)
  - Oedema [Recovered/Resolved]
